FAERS Safety Report 15379651 (Version 1)
Quarter: 2018Q3

REPORT INFORMATION
  Report Type: Spontaneous
  Country: US (occurrence: US)
  Receive Date: 20180913
  Receipt Date: 20180913
  Transmission Date: 20181010
  Serious: Yes (Hospitalization)
  Sender: FDA-Public Use
  Company Number: US-JNJFOC-20180900266

PATIENT
  Sex: Male

DRUGS (15)
  1. FLONASE [Concomitant]
     Active Substance: FLUTICASONE PROPIONATE
  2. KINERET [Concomitant]
     Active Substance: ANAKINRA
  3. PREDNISONE. [Concomitant]
     Active Substance: PREDNISONE
  4. AMITRIPTYLINE [Concomitant]
     Active Substance: AMITRIPTYLINE
  5. OXYCODONE [Concomitant]
     Active Substance: OXYCODONE
  6. ZYLOPRIM [Concomitant]
     Active Substance: ALLOPURINOL
  7. IMBRUVICA [Suspect]
     Active Substance: IBRUTINIB
     Indication: WALDENSTROM^S MACROGLOBULINAEMIA
     Route: 048
     Dates: start: 2018
  8. ATIVAN [Concomitant]
     Active Substance: LORAZEPAM
  9. BACTRIM [Concomitant]
     Active Substance: SULFAMETHOXAZOLE\TRIMETHOPRIM
  10. PROTONIX [Concomitant]
     Active Substance: PANTOPRAZOLE SODIUM
  11. COLCRYS [Concomitant]
     Active Substance: COLCHICINE
  12. GABAPENTIN. [Concomitant]
     Active Substance: GABAPENTIN
  13. LASIX [Concomitant]
     Active Substance: FUROSEMIDE
  14. MORPHINE [Concomitant]
     Active Substance: MORPHINE
  15. IMBRUVICA [Suspect]
     Active Substance: IBRUTINIB
     Indication: WALDENSTROM^S MACROGLOBULINAEMIA
     Route: 048

REACTIONS (1)
  - Pyrexia [Unknown]
